FAERS Safety Report 25066973 (Version 2)
Quarter: 2025Q3

REPORT INFORMATION
  Report Type: Report from Study
  Country: BR (occurrence: BR)
  Receive Date: 20250312
  Receipt Date: 20250830
  Transmission Date: 20251020
  Serious: Yes (Hospitalization)
  Sender: JOHNSON AND JOHNSON
  Company Number: BR-JNJFOC-20250319975

PATIENT
  Age: 87 Year
  Sex: Male

DRUGS (3)
  1. GOLIMUMAB [Suspect]
     Active Substance: GOLIMUMAB
     Indication: Rheumatoid arthritis
     Route: 058
  2. GOLIMUMAB [Suspect]
     Active Substance: GOLIMUMAB
  3. GOLIMUMAB [Suspect]
     Active Substance: GOLIMUMAB

REACTIONS (2)
  - Pneumonia [Unknown]
  - Lung disorder [Unknown]
